FAERS Safety Report 21557820 (Version 3)
Quarter: 2025Q3

REPORT INFORMATION
  Report Type: Spontaneous
  Country: EU (occurrence: EU)
  Receive Date: 20221106
  Receipt Date: 20250709
  Transmission Date: 20251021
  Serious: Yes (Hospitalization, Other)
  Sender: Kenvue
  Company Number: None

PATIENT

DRUGS (9)
  1. IMODIUM [Suspect]
     Active Substance: LOPERAMIDE HYDROCHLORIDE
     Indication: Product used for unknown indication
     Route: 065
     Dates: start: 20221012
  2. CODEINE [Suspect]
     Active Substance: CODEINE
     Indication: Product used for unknown indication
     Route: 065
     Dates: start: 20221012
  3. ACETAMINOPHEN [Suspect]
     Active Substance: ACETAMINOPHEN
     Indication: Product used for unknown indication
     Route: 065
     Dates: start: 20221012
  4. Glucose Na K Baxter [Concomitant]
     Indication: Product used for unknown indication
     Route: 065
     Dates: start: 20220926
  5. Vi-siblin [Concomitant]
     Indication: Product used for unknown indication
     Dosage: 610 MILLIGRAM, ONCE A DAY, GRANULES IN SACHETS,  PLANTAGO OVATA (ISPAGHULA) HUSK
     Route: 065
     Dates: start: 20220928
  6. SODIUM CHLORIDE [Concomitant]
     Active Substance: SODIUM CHLORIDE
     Indication: Product used for unknown indication
     Dosage: 3000 MILLIGRAM, ONCE A DAY, SODIUM CHLORIDE ABCUR
     Route: 065
     Dates: start: 20220824
  7. OMEPRAZOLE [Concomitant]
     Active Substance: OMEPRAZOLE
     Indication: Product used for unknown indication
     Dosage: 40 MILLIGRAM, ONCE A DAY
     Route: 065
     Dates: start: 20220827
  8. Betolvex [Concomitant]
     Indication: Product used for unknown indication
     Dosage: 1 MILLIGRAM, ONCE A DAY
     Route: 065
     Dates: start: 20220929
  9. FOLIC ACID [Concomitant]
     Active Substance: FOLIC ACID
     Indication: Product used for unknown indication
     Dosage: UNK, ONCE A DAY, FOLIC ACID, ANHYDROUS, 1 MILLIGRAM
     Route: 065
     Dates: start: 20220929

REACTIONS (6)
  - Intentional overdose [Recovering/Resolving]
  - Toxicity to various agents [Recovering/Resolving]
  - Hypokalaemia [Recovering/Resolving]
  - Metabolic acidosis [Recovering/Resolving]
  - Suicide attempt [Recovering/Resolving]
  - Vomiting [Recovering/Resolving]

NARRATIVE: CASE EVENT DATE: 20221012
